FAERS Safety Report 4560162-2 (Version None)
Quarter: 2005Q1

REPORT INFORMATION
  Report Type: 
  Country: None (occurrence: None)
  Receive Date: 20050125
  Receipt Date: 20050111
  Transmission Date: 20050727
  Serious: Yes (Hospitalization)
  Sender: FDA-Public Use
  Company Number: FR-ABBOTT-05P-056-0286165-00

PATIENT
  Age: 7 Year
  Sex: Male

DRUGS (2)
  1. DEPAKENE [Suspect]
     Indication: EPILEPSY
     Route: 048
     Dates: end: 20041124
  2. CARBAMAZEPINE [Suspect]
     Indication: EPILEPSY
     Route: 048
     Dates: start: 20041101, end: 20041124

REACTIONS (12)
  - CYTOLYTIC HEPATITIS [None]
  - DIARRHOEA [None]
  - GENERALISED OEDEMA [None]
  - HAEMODYNAMIC INSTABILITY [None]
  - HALITOSIS [None]
  - HYPERSENSITIVITY [None]
  - HYPERTHERMIA [None]
  - LYMPHOCYTOSIS [None]
  - PALLOR [None]
  - PHARYNGITIS [None]
  - RASH MORBILLIFORM [None]
  - RASH SCARLATINIFORM [None]
